FAERS Safety Report 19732923 (Version 2)
Quarter: 2021Q3

REPORT INFORMATION
  Report Type: Report from Study
  Country: CA (occurrence: CA)
  Receive Date: 20210823
  Receipt Date: 20210825
  Transmission Date: 20211014
  Serious: Yes (Other)
  Sender: FDA-Public Use
  Company Number: CA-BEH-2021135051

PATIENT
  Age: 54 Year
  Sex: Male

DRUGS (16)
  1. SINGULAIR [Concomitant]
     Active Substance: MONTELUKAST SODIUM
  2. SYMBICORT [Concomitant]
     Active Substance: BUDESONIDE\FORMOTEROL FUMARATE DIHYDRATE
  3. CYMBALTA [Concomitant]
     Active Substance: DULOXETINE HYDROCHLORIDE
  4. BERINERT [Suspect]
     Active Substance: HUMAN C1-ESTERASE INHIBITOR
     Indication: HEREDITARY ANGIOEDEMA
     Dosage: 3000 INTERNATIONAL UNIT, PRN (FOR ATTACKS)
     Route: 058
     Dates: start: 20160608
  5. NASONEX [Concomitant]
     Active Substance: MOMETASONE FUROATE
  6. NORVASC [Concomitant]
     Active Substance: AMLODIPINE BESYLATE
  7. DEXEDRINE [Concomitant]
     Active Substance: DEXTROAMPHETAMINE SULFATE
  8. BERINERT [Suspect]
     Active Substance: HUMAN C1-ESTERASE INHIBITOR
     Indication: PROPHYLAXIS
     Dosage: 3000 INTERNATIONAL UNIT, QD (DAILY)
     Route: 058
     Dates: start: 20160608
  9. BERINERT [Suspect]
     Active Substance: HUMAN C1-ESTERASE INHIBITOR
     Dosage: UNK
     Route: 058
     Dates: start: 20210812
  10. TRAMAZOLINE [Concomitant]
     Active Substance: TRAMAZOLINE
  11. CANNABIS [Concomitant]
     Active Substance: CANNABIS SATIVA SUBSP. INDICA TOP
  12. CARVEDILOL. [Concomitant]
     Active Substance: CARVEDILOL
  13. IMITREX [Concomitant]
     Active Substance: SUMATRIPTAN SUCCINATE
  14. BERINERT [Suspect]
     Active Substance: HUMAN C1-ESTERASE INHIBITOR
     Dosage: UNK
     Route: 058
     Dates: start: 20210819, end: 20210819
  15. PANTOLOC [PANTOPRAZOLE] [Concomitant]
     Active Substance: PANTOPRAZOLE SODIUM
  16. DANAZOL. [Concomitant]
     Active Substance: DANAZOL

REACTIONS (9)
  - Off label use [Unknown]
  - Gastrointestinal haemorrhage [Unknown]
  - No adverse event [Unknown]
  - Asthenia [Unknown]
  - Palpitations [Unknown]
  - Atrial fibrillation [Unknown]
  - Fatigue [Unknown]
  - Polyp [Not Recovered/Not Resolved]
  - Bundle branch block right [Unknown]

NARRATIVE: CASE EVENT DATE: 20210812
